FAERS Safety Report 5334652-9 (Version None)
Quarter: 2007Q2

REPORT INFORMATION
  Report Type: 
  Country: None (occurrence: None)
  Receive Date: 20070525
  Receipt Date: 20070517
  Transmission Date: 20071010
  Serious: Yes (Hospitalization)
  Sender: FDA-Public Use
  Company Number: B0469652A

PATIENT
  Age: 3 Year
  Sex: Female

DRUGS (1)
  1. ZINACEF [Suspect]
     Dosage: 750MG UNKNOWN
     Route: 042
     Dates: start: 20070430

REACTIONS (2)
  - CHILLS [None]
  - PYREXIA [None]
